FAERS Safety Report 10206961 (Version 2)
Quarter: 2014Q2

REPORT INFORMATION
  Report Type: Spontaneous
  Country: US (occurrence: US)
  Receive Date: 20140530
  Receipt Date: 20140530
  Transmission Date: 20141212
  Serious: No
  Sender: FDA-Public Use
  Company Number: US-MYLANLABS-2014S1008294

PATIENT
  Sex: Male
  Weight: 65.77 kg

DRUGS (11)
  1. BUPROPION HYDROCHLORIDE EXTENDED-RELEASE TABLETS USP, (SR) [Suspect]
     Indication: DEPRESSION
     Route: 048
     Dates: start: 2013
  2. BUPROPION HYDROCHLORIDE EXTENDED-RELEASE TABLETS USP, (SR) [Suspect]
     Indication: OFF LABEL USE
     Route: 048
     Dates: start: 2013
  3. TRUVADA [Concomitant]
  4. NORVIR [Concomitant]
     Indication: HIV INFECTION
  5. REYATAZ [Concomitant]
     Indication: HIV INFECTION
  6. CEROVITE [Concomitant]
  7. ISENTRESS [Concomitant]
     Indication: HEPATITIS
  8. LOXAPINE [Concomitant]
     Indication: MENTAL DISORDER
     Dosage: 10MG AND 5MG
  9. ENALAPRIL [Concomitant]
     Indication: BLOOD PRESSURE
  10. OLANZAPINE [Concomitant]
  11. MULTI VITAMIN [Concomitant]

REACTIONS (1)
  - Skin odour abnormal [Not Recovered/Not Resolved]
